FAERS Safety Report 22698069 (Version 7)
Quarter: 2024Q1

REPORT INFORMATION
  Report Type: Spontaneous
  Country: US (occurrence: US)
  Receive Date: 20230712
  Receipt Date: 20240307
  Transmission Date: 20240410
  Serious: No
  Sender: FDA-Public Use
  Company Number: US-PFIZER INC-PV202300108044

PATIENT
  Age: 78 Year
  Sex: Female
  Weight: 83.262 kg

DRUGS (3)
  1. IBRANCE [Suspect]
     Active Substance: PALBOCICLIB
     Indication: Breast cancer metastatic
     Dosage: 125 MG, CYCLIC (ONCE A DAY ON DAYS 1-21 OF A 28-DAY TREATMENT CYCLE)
     Route: 048
     Dates: start: 20230605
  2. IBRANCE [Suspect]
     Active Substance: PALBOCICLIB
     Dosage: ONCE DAILY ON DAYS 1 THROUGHT 21 OF 28DAYS CYCLE
     Route: 048
     Dates: start: 202306
  3. FASLODEX [Concomitant]
     Active Substance: FULVESTRANT
     Dosage: UNK
     Route: 030
     Dates: start: 20230605

REACTIONS (8)
  - Urticaria [Recovered/Resolved]
  - Oral pain [Not Recovered/Not Resolved]
  - Neoplasm progression [Not Recovered/Not Resolved]
  - Abdominal discomfort [Unknown]
  - Alopecia [Unknown]
  - Increased upper airway secretion [Unknown]
  - Weight decreased [Unknown]
  - Dyspnoea [Unknown]
